FAERS Safety Report 10045130 (Version 1)
Quarter: 2014Q1

REPORT INFORMATION
  Report Type: Spontaneous
  Country: US (occurrence: US)
  Receive Date: 20140328
  Receipt Date: 20140328
  Transmission Date: 20141002
  Serious: Yes (Hospitalization)
  Sender: FDA-Public Use
  Company Number: US-DYAX CORP.-2014DX000035

PATIENT
  Age: 22 Year
  Sex: Female

DRUGS (2)
  1. KALBITOR [Suspect]
     Indication: HEREDITARY ANGIOEDEMA
     Route: 058
     Dates: start: 20140317, end: 20140317
  2. KALBITOR [Suspect]
     Route: 058
     Dates: start: 20140316, end: 20140316

REACTIONS (3)
  - Oxygen saturation decreased [Not Recovered/Not Resolved]
  - Hereditary angioedema [Not Recovered/Not Resolved]
  - Drooling [Not Recovered/Not Resolved]
